FAERS Safety Report 6184969-3 (Version None)
Quarter: 2009Q2

REPORT INFORMATION
  Report Type: 
  Country: None (occurrence: None)
  Receive Date: 20090511
  Receipt Date: 20090203
  Transmission Date: 20091009
  Serious: No
  Sender: FDA-Public Use
  Company Number: A0766615A

PATIENT
  Age: 74 Year
  Sex: Male

DRUGS (5)
  1. COREG CR [Suspect]
     Indication: HYPERTENSION
     Dosage: 20MG PER DAY
     Route: 048
     Dates: start: 20080801
  2. AVALIDE [Suspect]
     Dosage: 1TAB PER DAY
     Route: 048
     Dates: start: 20080101
  3. UNKNOWN MEDICATION [Concomitant]
  4. JANUVIA [Concomitant]
  5. GLUCOTROL [Concomitant]

REACTIONS (3)
  - BLOOD PRESSURE DECREASED [None]
  - DIZZINESS [None]
  - FEELING ABNORMAL [None]
